FAERS Safety Report 23367041 (Version 1)
Quarter: 2024Q1

REPORT INFORMATION
  Report Type: Spontaneous
  Country: BR (occurrence: BR)
  Receive Date: 20240104
  Receipt Date: 20240104
  Transmission Date: 20240410
  Serious: Yes (Other)
  Sender: FDA-Public Use
  Company Number: BR-TAKEDA-2024TUS000992

PATIENT
  Age: 86 Year

DRUGS (1)
  1. DEXILANT [Suspect]
     Active Substance: DEXLANSOPRAZOLE
     Indication: Product used for unknown indication
     Dosage: UNK
     Route: 065

REACTIONS (7)
  - Adverse event [Unknown]
  - Cognitive disorder [Unknown]
  - Confusional state [Unknown]
  - Condition aggravated [Unknown]
  - Blood sodium decreased [Unknown]
  - Dysphagia [Unknown]
  - Diarrhoea [Unknown]
